FAERS Safety Report 19258714 (Version 1)
Quarter: 2021Q2

REPORT INFORMATION
  Report Type: Spontaneous
  Country: US (occurrence: US)
  Receive Date: 20210514
  Receipt Date: 20210514
  Transmission Date: 20210717
  Serious: Yes (Other)
  Sender: FDA-Public Use
  Company Number: US-ELI_LILLY_AND_COMPANY-US202105003026

PATIENT
  Age: 53 Year
  Sex: Female

DRUGS (5)
  1. LANTUS [Concomitant]
     Active Substance: INSULIN GLARGINE
     Indication: TYPE 1 DIABETES MELLITUS
  2. HUMALOG [Suspect]
     Active Substance: INSULIN LISPRO
     Indication: TYPE 1 DIABETES MELLITUS
     Dosage: 3 U, OTHER SLIDING SCALE
     Route: 058
  3. HUMALOG [Suspect]
     Active Substance: INSULIN LISPRO
     Dosage: 3 U, OTHER SLIDING SCALE
     Route: 058
  4. NOVOLOG [Concomitant]
     Active Substance: INSULIN ASPART
     Indication: TYPE 1 DIABETES MELLITUS
  5. BASAGLAR [Concomitant]
     Active Substance: INSULIN GLARGINE
     Indication: TYPE 1 DIABETES MELLITUS

REACTIONS (10)
  - COVID-19 [Recovered/Resolved]
  - Fall [Unknown]
  - Wrong patient received product [Unknown]
  - Incorrect product administration duration [Unknown]
  - Blood glucose increased [Unknown]
  - COVID-19 [Recovering/Resolving]
  - Blood glucose decreased [Unknown]
  - Ankle fracture [Recovering/Resolving]
  - Seizure [Not Recovered/Not Resolved]
  - Expired product administered [Unknown]

NARRATIVE: CASE EVENT DATE: 20201201
